FAERS Safety Report 10030422 (Version 1)
Quarter: 2014Q1

REPORT INFORMATION
  Report Type: Spontaneous
  Country: US (occurrence: US)
  Receive Date: 20140323
  Receipt Date: 20140323
  Transmission Date: 20141002
  Serious: No
  Sender: FDA-Public Use
  Company Number: US-ALLERGAN-1313095US

PATIENT
  Age: 66 Year
  Sex: Female

DRUGS (3)
  1. LATISSE 0.03% [Suspect]
     Indication: GROWTH OF EYELASHES
     Dosage: 2 GTT, QHS
     Route: 061
     Dates: start: 201308, end: 201308
  2. MOBIC [Concomitant]
     Indication: ARTHRITIS
     Dosage: UNK
  3. ENBREL [Concomitant]
     Indication: ARTHRITIS
     Dosage: UNK

REACTIONS (4)
  - Application site discolouration [Unknown]
  - Eyelid irritation [Unknown]
  - Eyelid irritation [Unknown]
  - Lacrimation increased [Unknown]
